FAERS Safety Report 5512550-5 (Version None)
Quarter: 2007Q4

REPORT INFORMATION
  Report Type: 
  Country: None (occurrence: None)
  Receive Date: 20071112
  Receipt Date: 20070910
  Transmission Date: 20080405
  Serious: No
  Sender: FDA-Public Use
  Company Number: A0680176A

PATIENT
  Age: 64 Year
  Sex: Male

DRUGS (10)
  1. AVANDAMET [Suspect]
     Dosage: 1TAB TWICE PER DAY
     Route: 048
     Dates: start: 20070820
  2. ADVAIR DISKUS 100/50 [Concomitant]
  3. COMBIVENT [Concomitant]
  4. SPIRIVA [Concomitant]
  5. KLOR-CON [Concomitant]
  6. ALTACE [Concomitant]
  7. PERCODAN [Concomitant]
  8. ALEVE [Concomitant]
  9. HYDROCHLOROTHIAZIDE [Concomitant]
  10. GLIPIZIDE [Concomitant]

REACTIONS (5)
  - BLOOD GLUCOSE INCREASED [None]
  - DIZZINESS [None]
  - DRUG INEFFECTIVE [None]
  - FEELING ABNORMAL [None]
  - VISUAL DISTURBANCE [None]
